FAERS Safety Report 9332089 (Version 1)
Quarter: 2013Q2

REPORT INFORMATION
  Report Type: Spontaneous
  Country: US (occurrence: US)
  Receive Date: 20130605
  Receipt Date: 20130605
  Transmission Date: 20140414
  Serious: Yes (Hospitalization)
  Sender: FDA-Public Use
  Company Number: US-ROXANE LABORATORIES, INC.-2013-RO-00877RO

PATIENT
  Sex: Female

DRUGS (1)
  1. OXCARBAZEPINE [Suspect]

REACTIONS (2)
  - Drug ineffective [Unknown]
  - Product quality issue [Unknown]
